FAERS Safety Report 13866741 (Version 2)
Quarter: 2017Q3

REPORT INFORMATION
  Report Type: Spontaneous
  Country: US (occurrence: US)
  Receive Date: 20170814
  Receipt Date: 20170817
  Transmission Date: 20171127
  Serious: Yes (Life-Threatening, Hospitalization, Other)
  Sender: FDA-Public Use
  Company Number: US-ASTRAZENECA-2017SE81597

PATIENT
  Sex: Female
  Weight: 78 kg

DRUGS (4)
  1. BYETTA [Suspect]
     Active Substance: EXENATIDE
     Indication: TYPE 2 DIABETES MELLITUS
     Route: 058
  2. BYETTA [Suspect]
     Active Substance: EXENATIDE
     Indication: TYPE 2 DIABETES MELLITUS
     Route: 058
     Dates: end: 201602
  3. HUMALOG [Concomitant]
     Active Substance: INSULIN LISPRO
  4. LEVEMIR [Suspect]
     Active Substance: INSULIN DETEMIR
     Route: 065

REACTIONS (16)
  - Feeling abnormal [Unknown]
  - Eating disorder [Not Recovered/Not Resolved]
  - Adverse drug reaction [Recovered/Resolved]
  - Blood blister [Recovered/Resolved with Sequelae]
  - Decreased activity [Not Recovered/Not Resolved]
  - Sepsis [Recovered/Resolved]
  - Pyrexia [Recovered/Resolved]
  - Pain in extremity [Not Recovered/Not Resolved]
  - Increased appetite [Not Recovered/Not Resolved]
  - Blood glucose fluctuation [Recovered/Resolved]
  - Weight increased [Not Recovered/Not Resolved]
  - Blood glucose increased [Not Recovered/Not Resolved]
  - Ketoacidosis [Recovered/Resolved]
  - Gait inability [Recovered/Resolved with Sequelae]
  - Malaise [Recovered/Resolved]
  - Thinking abnormal [Not Recovered/Not Resolved]

NARRATIVE: CASE EVENT DATE: 201602
